FAERS Safety Report 10495430 (Version 1)
Quarter: 2014Q4

REPORT INFORMATION
  Report Type: Spontaneous
  Country: US (occurrence: None)
  Receive Date: 20141001
  Receipt Date: 20141001
  Transmission Date: 20150528
  Serious: Yes (Other)
  Sender: FDA-Public Use
  Company Number: ADR-2014-01136

PATIENT
  Age: 57 Year
  Sex: Female

DRUGS (4)
  1. DILAUDID [Suspect]
     Active Substance: HYDROMORPHONE HYDROCHLORIDE
     Dosage: 50 MG/ML AT A DOSE OF 13.004 MG/DAY
  2. ORAL MEDICATION [Suspect]
     Active Substance: UNSPECIFIED INGREDIENT
  3. BACLOFEN INTRATHECAL 2500 MCG/ML [Suspect]
     Active Substance: BACLOFEN
     Indication: PAIN
  4. BUPIVACAINE INTRATHECAL 8.0 MG/ML [Suspect]
     Active Substance: BUPIVACAINE
     Indication: PAIN

REACTIONS (6)
  - Vomiting [None]
  - Nausea [None]
  - Vertebral column mass [None]
  - Influenza like illness [None]
  - Feeling abnormal [None]
  - Drug withdrawal syndrome [None]
